FAERS Safety Report 7978021-1 (Version None)
Quarter: 2011Q4

REPORT INFORMATION
  Report Type: 
  Country: None (occurrence: None)
  Receive Date: 20111214
  Receipt Date: 20111209
  Transmission Date: 20120403
  Serious: No
  Sender: FDA-Public Use
  Company Number: US-BIOGENIDEC-2011BI046904

PATIENT
  Sex: Female

DRUGS (2)
  1. TYSABRI [Suspect]
     Indication: MULTIPLE SCLEROSIS
     Route: 042
     Dates: start: 20101213
  2. BACLOFEN [Concomitant]
     Indication: MUSCLE SPASTICITY

REACTIONS (4)
  - FRUSTRATION [None]
  - MOBILITY DECREASED [None]
  - INSOMNIA [None]
  - MUSCLE SPASTICITY [None]
